FAERS Safety Report 15705462 (Version 1)
Quarter: 2018Q4

REPORT INFORMATION
  Report Type: Spontaneous
  Country: US (occurrence: US)
  Receive Date: 20181210
  Receipt Date: 20181210
  Transmission Date: 20190205
  Serious: Yes (Disabling)
  Sender: FDA-Public Use
  Company Number: None

PATIENT
  Age: 61 Year
  Sex: Female
  Weight: 47.7 kg

DRUGS (1)
  1. LYRICA [Suspect]
     Active Substance: PREGABALIN
     Indication: FIBROMYALGIA
     Dosage: ?          QUANTITY:1 TABLET(S);?
     Route: 048
     Dates: start: 20181008, end: 20181009

REACTIONS (6)
  - Nausea [None]
  - Hunger [None]
  - Dizziness [None]
  - Dysstasia [None]
  - Feeling drunk [None]
  - Sleep disorder [None]

NARRATIVE: CASE EVENT DATE: 20181008
